FAERS Safety Report 18603383 (Version 13)
Quarter: 2023Q1

REPORT INFORMATION
  Report Type: Spontaneous
  Country: CA (occurrence: CA)
  Receive Date: 20201210
  Receipt Date: 20230208
  Transmission Date: 20230418
  Serious: Yes (Hospitalization, Other)
  Sender: FDA-Public Use
  Company Number: CA-CELLTRION INC.-2019CA028144

PATIENT

DRUGS (19)
  1. INFLECTRA [Suspect]
     Active Substance: INFLIXIMAB-DYYB
     Indication: Crohn^s disease
     Dosage: 5 MG/KG, 0, 2, 6 THEN EVERY 8 WEEKS, (ROUNDED TO NEAREST 100 MG)
     Route: 042
     Dates: start: 20191209
  2. INFLECTRA [Suspect]
     Active Substance: INFLIXIMAB-DYYB
     Dosage: 5 MG/KG, 0, 2, 6 THEN EVERY 8 WEEKS
     Route: 042
     Dates: start: 20191224
  3. INFLECTRA [Suspect]
     Active Substance: INFLIXIMAB-DYYB
     Dosage: 5 MG/KG, 0, 2, 6 THEN EVERY 8 WEEKS
     Route: 042
     Dates: start: 20200508
  4. INFLECTRA [Suspect]
     Active Substance: INFLIXIMAB-DYYB
     Dosage: 5 MG/KG, 0, 2, 6 THEN EVERY 8 WEEKS
     Route: 042
     Dates: start: 20200717
  5. INFLECTRA [Suspect]
     Active Substance: INFLIXIMAB-DYYB
     Dosage: 5 MG/KG, 0, 2, 6 THEN EVERY 8 WEEKS
     Route: 042
     Dates: start: 20201116, end: 20201116
  6. INFLECTRA [Suspect]
     Active Substance: INFLIXIMAB-DYYB
     Dosage: 5 MG/KG, 0, 2, 6 THEN EVERY 8 WEEKS
     Route: 042
     Dates: start: 20210308
  7. INFLECTRA [Suspect]
     Active Substance: INFLIXIMAB-DYYB
     Dosage: 5 MG/KG,0, 2, 6 THEN EVERY 8 WEEKS
     Route: 042
     Dates: start: 20210428
  8. INFLECTRA [Suspect]
     Active Substance: INFLIXIMAB-DYYB
     Dosage: 5 MG/KG, 0, 2, 6 THEN EVERY 8 WEEKS
     Route: 042
     Dates: start: 20210714
  9. INFLECTRA [Suspect]
     Active Substance: INFLIXIMAB-DYYB
     Dosage: 5 MG/KG, 0, 2, 6 THEN EVERY 8 WEEKS
     Route: 042
     Dates: start: 20211012
  10. INFLECTRA [Suspect]
     Active Substance: INFLIXIMAB-DYYB
     Dosage: 5 MG/KG, 0, 2, 6 THEN EVERY 8 WEEKS
     Route: 042
     Dates: start: 20220107
  11. INFLECTRA [Suspect]
     Active Substance: INFLIXIMAB-DYYB
     Dosage: 5 MG/KG,0, 2, 6 THEN EVERY 8 WEEKS
     Route: 042
     Dates: start: 20220304
  12. INFLECTRA [Suspect]
     Active Substance: INFLIXIMAB-DYYB
     Dosage: 5 MG/KG, 0, 2, 6 THEN EVERY 8 WEEKS, (ROUNDED TO NEAREST 100 MG)
     Route: 042
     Dates: start: 20220623
  13. INFLECTRA [Suspect]
     Active Substance: INFLIXIMAB-DYYB
     Dosage: 5 MG/KG, 0, 2, 6 THEN EVERY 8 WEEKS, (ROUNDED TO NEAREST 100 MG)
     Route: 042
     Dates: start: 20220826
  14. INFLECTRA [Suspect]
     Active Substance: INFLIXIMAB-DYYB
     Dosage: 5 MG/KG, 0, 2, 6 THEN EVERY 8 WEEKS, (ROUNDED TO NEAREST 100 MG)
     Route: 042
     Dates: start: 20221021
  15. INFLECTRA [Suspect]
     Active Substance: INFLIXIMAB-DYYB
     Dosage: 600 MG (5 MG/KG), 0, 2, 6 THEN EVERY 8 WEEKS, (ROUNDED TO NEAREST 100 MG)
     Route: 042
     Dates: start: 20230130
  16. PERINDOPRIL [Concomitant]
     Active Substance: PERINDOPRIL
     Dosage: 1 DF
  17. PREVACID [Concomitant]
     Active Substance: LANSOPRAZOLE
     Dosage: 1 DF
  18. RIFAMPIN [Concomitant]
     Active Substance: RIFAMPIN
     Dosage: 1 DF, UNKNOWN FOR 4 MONTHS
     Dates: start: 201910
  19. SYNTHROID [Concomitant]
     Active Substance: LEVOTHYROXINE SODIUM
     Dosage: 1 DF

REACTIONS (14)
  - Pulmonary embolism [Recovering/Resolving]
  - Salmonella bacteraemia [Recovering/Resolving]
  - Pyrexia [Unknown]
  - Anal fissure [Unknown]
  - Infusion site pain [Unknown]
  - Infusion site extravasation [Unknown]
  - Infusion site swelling [Unknown]
  - Gastrointestinal viral infection [Unknown]
  - Abdominal distension [Not Recovered/Not Resolved]
  - Weight increased [Unknown]
  - Condition aggravated [Recovered/Resolved]
  - Blood pressure increased [Unknown]
  - Incorrect dosage administered [Unknown]
  - Inappropriate schedule of product administration [Unknown]

NARRATIVE: CASE EVENT DATE: 20200717
